FAERS Safety Report 7593049-1 (Version None)
Quarter: 2011Q3

REPORT INFORMATION
  Report Type: 
  Country: None (occurrence: None)
  Receive Date: 20110706
  Receipt Date: 20110628
  Transmission Date: 20111222
  Serious: Yes (Other)
  Sender: FDA-Public Use
  Company Number: JP-ALLERGAN-1108989US

PATIENT
  Age: 36 Year
  Sex: Male

DRUGS (2)
  1. BOTOX [Suspect]
     Indication: MUSCLE SPASMS
     Dosage: 50 UNITS, SINGLE
     Route: 030
     Dates: start: 20101220, end: 20101220
  2. BOTOX [Suspect]
     Dosage: 50 UNITS, SINGLE
     Route: 030
     Dates: start: 20110326, end: 20110326

REACTIONS (1)
  - JOINT DISLOCATION [None]
